FAERS Safety Report 6493250-4 (Version None)
Quarter: 2009Q4

REPORT INFORMATION
  Report Type: 
  Country: None (occurrence: None)
  Receive Date: 20091214
  Receipt Date: 20091204
  Transmission Date: 20100525
  Serious: Yes (Other)
  Sender: FDA-Public Use
  Company Number: B0608629A

PATIENT
  Sex: Female

DRUGS (3)
  1. NIQUITIN CQ CLEAR 21MG [Suspect]
     Indication: DRUG USE FOR UNKNOWN INDICATION
     Dosage: 21MG UNKNOWN
     Route: 062
  2. ATENOLOL [Concomitant]
  3. PENICILLIN VK [Concomitant]

REACTIONS (3)
  - APPLICATION SITE OEDEMA [None]
  - PSORIASIS [None]
  - PUSTULAR PSORIASIS [None]
